FAERS Safety Report 8784190 (Version 1)
Quarter: 2012Q4

REPORT INFORMATION
  Report Type: Report from Study
  Country: US (occurrence: US)
  Receive Date: 20120913
  Receipt Date: 20120913
  Transmission Date: 20130627
  Serious: No
  Sender: FDA-Public Use
  Company Number: US-VERTEX PHARMACEUTICAL INC.-AE-2012-009007

PATIENT
  Age: 61 Year
  Sex: Male
  Weight: 81.82 kg

DRUGS (8)
  1. INCIVEK [Suspect]
     Indication: HEPATITIS C
     Route: 048
     Dates: start: 20120511
  2. INCIVEK [Suspect]
     Route: 048
  3. PEGASYS [Concomitant]
     Indication: HEPATITIS C
  4. RIBAVIRIN [Concomitant]
     Indication: HEPATITIS C
  5. STOOL SOFTEN [Concomitant]
  6. METAMUCIL POW [Concomitant]
  7. MULTI COMPLT TAB/IRON [Concomitant]
  8. IRON FORMULA [Concomitant]

REACTIONS (7)
  - Influenza like illness [Unknown]
  - Constipation [Unknown]
  - Fatigue [Unknown]
  - Rash [Unknown]
  - Haematocrit decreased [Unknown]
  - Pruritus [Unknown]
  - Haemoglobin decreased [Unknown]
